FAERS Safety Report 15469860 (Version 2)
Quarter: 2018Q4

REPORT INFORMATION
  Report Type: Report from Study
  Country: CA (occurrence: CA)
  Receive Date: 20181005
  Receipt Date: 20181011
  Transmission Date: 20190205
  Serious: Yes (Other)
  Sender: FDA-Public Use
  Company Number: PHHY2018CA097539

PATIENT
  Age: 52 Year
  Sex: Female

DRUGS (1)
  1. AFINITOR [Suspect]
     Active Substance: EVEROLIMUS
     Indication: BREAST CANCER
     Dosage: 7.5 MG, QD
     Route: 048
     Dates: start: 20180907

REACTIONS (18)
  - Nausea [Unknown]
  - Pyrexia [Unknown]
  - Stress [Recovered/Resolved]
  - Hepatic infection [Unknown]
  - Somnolence [Unknown]
  - Pigmentation disorder [Unknown]
  - Oropharyngeal pain [Recovering/Resolving]
  - Decreased appetite [Unknown]
  - Diarrhoea [Unknown]
  - Hepatitis [Unknown]
  - Nerve compression [Unknown]
  - Blood oestrogen decreased [Unknown]
  - Pain [Unknown]
  - Burning sensation [Unknown]
  - Weight decreased [Unknown]
  - Lung cancer metastatic [Unknown]
  - Neuralgia [Unknown]
  - Oral pain [Recovering/Resolving]

NARRATIVE: CASE EVENT DATE: 201809
